FAERS Safety Report 4343025-7 (Version None)
Quarter: 2004Q2

REPORT INFORMATION
  Report Type: 
  Country: None (occurrence: None)
  Receive Date: 20040416
  Receipt Date: 20040331
  Transmission Date: 20050107
  Serious: Yes (Death)
  Sender: FDA-Public Use
  Company Number: 2004-06775

PATIENT
  Age: 45 Year
  Sex: Male
  Weight: 40 kg

DRUGS (6)
  1. VIREAD [Suspect]
     Indication: HIV INFECTION
     Dosage: 300 MG, ONCE A DAY, ORAL
     Route: 048
     Dates: start: 20040217, end: 20040226
  2. EMTRICITABINE (EMTRICITABINE) [Concomitant]
  3. KALETRA [Concomitant]
  4. BACTRIM FORTE (BACTRIM) [Concomitant]
  5. ROVALCYTE (VALGANCICLOVIR HYDROCHLORIDE) [Concomitant]
  6. LEDERFOLINE (CALCIUM FOLINATE) [Concomitant]

REACTIONS (13)
  - ABDOMINAL PAIN [None]
  - BACK PAIN [None]
  - BLOOD BICARBONATE DECREASED [None]
  - BLOOD CHOLESTEROL INCREASED [None]
  - BLOOD CREATININE INCREASED [None]
  - BLOOD PHOSPHORUS INCREASED [None]
  - BLOOD POTASSIUM DECREASED [None]
  - CD4 LYMPHOCYTES DECREASED [None]
  - DEHYDRATION [None]
  - GLYCOSURIA [None]
  - PROTEINURIA [None]
  - RENAL FAILURE [None]
  - SUDDEN DEATH [None]
